FAERS Safety Report 25886509 (Version 1)
Quarter: 2025Q4

REPORT INFORMATION
  Report Type: Spontaneous
  Country: AU (occurrence: AU)
  Receive Date: 20251006
  Receipt Date: 20251006
  Transmission Date: 20260117
  Serious: Yes (Hospitalization, Other)
  Sender: ELITE
  Company Number: AU-ELITEPHARMA-2025ELLIT00224

PATIENT
  Age: 67 Year
  Sex: Male

DRUGS (3)
  1. METHOTREXATE [Suspect]
     Active Substance: METHOTREXATE
     Indication: Cardiac sarcoidosis
     Route: 065
  2. METHOTREXATE [Suspect]
     Active Substance: METHOTREXATE
     Indication: Cardiac sarcoidosis
  3. AMIODARONE [Concomitant]
     Active Substance: AMIODARONE
     Indication: Cardiac sarcoidosis
     Route: 042

REACTIONS (3)
  - Sepsis [Unknown]
  - Enterovesical fistula [Unknown]
  - Product use in unapproved indication [Unknown]
